FAERS Safety Report 22340393 (Version 1)
Quarter: 2023Q2

REPORT INFORMATION
  Report Type: Spontaneous
  Country: US (occurrence: None)
  Receive Date: 20230517
  Receipt Date: 20230517
  Transmission Date: 20230721
  Serious: No
  Sender: FDA-Public Use
  Company Number: None

PATIENT
  Age: 75 Year
  Sex: Female

DRUGS (34)
  1. OTEZLA [Suspect]
     Active Substance: APREMILAST
     Dates: start: 20191211
  2. ALBUTEROL AER HFA [Concomitant]
  3. B COMPLEX [Concomitant]
  4. BIOTIN [Concomitant]
     Active Substance: BIOTIN
  5. CIMZIA [Concomitant]
     Active Substance: CERTOLIZUMAB PEGOL
  6. CALCIUM CITRATE [Concomitant]
     Active Substance: CALCIUM CITRATE
  7. CLONAZEPAM [Concomitant]
     Active Substance: CLONAZEPAM
  8. COLESEVELAM [Concomitant]
     Active Substance: COLESEVELAM
  9. ESZOPICLONE [Concomitant]
     Active Substance: ESZOPICLONE
  10. FAMOTIDINE [Concomitant]
     Active Substance: FAMOTIDINE
  11. FOSAMAX [Concomitant]
     Active Substance: ALENDRONATE SODIUM
  12. GABAPENTIN [Concomitant]
     Active Substance: GABAPENTIN
  13. ACETAMINOPHEN\HYDROCODONE [Concomitant]
     Active Substance: ACETAMINOPHEN\HYDROCODONE
  14. IBUPROFEN [Concomitant]
     Active Substance: IBUPROFEN
  15. IPRATROPIUM SPR [Concomitant]
  16. LEFLUNOMIDE [Concomitant]
     Active Substance: LEFLUNOMIDE
  17. LORAZEPAM [Concomitant]
     Active Substance: LORAZEPAM
  18. MEDROL [Concomitant]
     Active Substance: METHYLPREDNISOLONE
  19. MELOXICAM [Concomitant]
     Active Substance: MELOXICAM
  20. MIRTAZAPINE [Concomitant]
     Active Substance: MIRTAZAPINE
  21. MORPHINE SULFATE [Concomitant]
     Active Substance: MORPHINE SULFATE
  22. VITAMINS [Concomitant]
     Active Substance: VITAMINS
  23. OMEPRAZOLE [Concomitant]
     Active Substance: OMEPRAZOLE
  24. ONDANSETRON [Concomitant]
     Active Substance: ONDANSETRON
  25. OXYCODONE AND ACETAMINOPHEN [Concomitant]
     Active Substance: ACETAMINOPHEN\OXYCODONE HYDROCHLORIDE
  26. PREDNISONE [Concomitant]
     Active Substance: PREDNISONE
  27. PROZAC [Concomitant]
     Active Substance: FLUOXETINE HYDROCHLORIDE
  28. RESTASIS EMU [Concomitant]
  29. RIZATRIPTAN [Concomitant]
     Active Substance: RIZATRIPTAN
  30. TACROLIMUS [Concomitant]
     Active Substance: TACROLIMUS
  31. TRIAMCINOLON CRE [Concomitant]
  32. VALACYCLOVIR [Concomitant]
     Active Substance: VALACYCLOVIR HYDROCHLORIDE
  33. VITAMIN C [Concomitant]
     Active Substance: ASCORBIC ACID
  34. VITAMIN D [Concomitant]
     Active Substance: VITAMIN D NOS

REACTIONS (4)
  - Urticaria [None]
  - Pain [None]
  - Loss of personal independence in daily activities [None]
  - Rash [None]

NARRATIVE: CASE EVENT DATE: 20230517
